FAERS Safety Report 6338256-0 (Version None)
Quarter: 2009Q3

REPORT INFORMATION
  Report Type: 
  Country: None (occurrence: None)
  Receive Date: 20090902
  Receipt Date: 20090828
  Transmission Date: 20100115
  Serious: Yes (Death, Hospitalization)
  Sender: FDA-Public Use
  Company Number: DE-CELGENEUS-062-20785-09070565

PATIENT
  Sex: Male
  Weight: 92 kg

DRUGS (8)
  1. THALIDOMIDE [Suspect]
     Indication: MULTIPLE MYELOMA
     Route: 048
  2. DEXAMETHASONE [Suspect]
     Indication: MULTIPLE MYELOMA
     Route: 048
  3. FLUVASTATIN [Concomitant]
     Route: 065
  4. FLUVASTATIN [Concomitant]
  5. MICARDIS [Concomitant]
     Dosage: 80/12.5
     Route: 065
  6. MICARDIS [Concomitant]
  7. BISOPROLOL [Concomitant]
     Route: 065
  8. BISOPROLOL [Concomitant]

REACTIONS (3)
  - DISEASE PROGRESSION [None]
  - HEPATIC FAILURE [None]
  - NO THERAPEUTIC RESPONSE [None]
